FAERS Safety Report 8210634-4 (Version None)
Quarter: 2012Q1

REPORT INFORMATION
  Report Type: 
  Country: None (occurrence: None)
  Receive Date: 20120314
  Receipt Date: 20120307
  Transmission Date: 20120608
  Serious: Yes (Hospitalization, Disabling)
  Sender: FDA-Public Use
  Company Number: US-MERCK-1111USA01293

PATIENT
  Age: 58 Year
  Sex: Female
  Weight: 72 kg

DRUGS (13)
  1. ALENDRONATE SODIUM [Suspect]
     Indication: OSTEOPOROSIS
     Route: 048
     Dates: start: 20080825, end: 20091115
  2. SIMVASTATIN [Concomitant]
     Route: 065
     Dates: start: 20080101
  3. ENALAPRIL MALEATE [Concomitant]
     Route: 065
     Dates: start: 20080901
  4. FOSAMAX [Suspect]
     Indication: OSTEOPOROSIS
     Route: 048
     Dates: start: 20010101
  5. INDERAL [Concomitant]
     Route: 065
     Dates: start: 19860101
  6. ZOCOR [Concomitant]
     Route: 048
     Dates: start: 20060101
  7. LIPITOR [Concomitant]
     Route: 065
     Dates: start: 19960101, end: 20060101
  8. CENTRUM [Concomitant]
     Route: 065
     Dates: start: 19860101, end: 20111001
  9. GEMFIBROZIL [Concomitant]
     Route: 065
     Dates: start: 20071201, end: 20080101
  10. HYDROCHLOROTHIAZIDE [Concomitant]
     Route: 065
     Dates: start: 19860101
  11. CLARINEX [Concomitant]
     Route: 048
     Dates: start: 20041201, end: 20081201
  12. VASOTEC [Concomitant]
     Route: 048
     Dates: start: 19860101
  13. CALCIUM (UNSPECIFIED) [Concomitant]
     Route: 065
     Dates: start: 19960101

REACTIONS (30)
  - PORTAL VEIN THROMBOSIS [None]
  - RASH [None]
  - ANAEMIA [None]
  - INTERVERTEBRAL DISC PROTRUSION [None]
  - PAIN IN EXTREMITY [None]
  - ARTHRALGIA [None]
  - LIGAMENT SPRAIN [None]
  - DIVERTICULITIS [None]
  - GAIT DISTURBANCE [None]
  - OSTEOPENIA [None]
  - NERVE DEGENERATION [None]
  - WRIST FRACTURE [None]
  - LOW TURNOVER OSTEOPATHY [None]
  - LUMBAR SPINAL STENOSIS [None]
  - HYPERLIPIDAEMIA [None]
  - CARPAL TUNNEL SYNDROME [None]
  - TENOSYNOVITIS [None]
  - DEEP VEIN THROMBOSIS [None]
  - FOOT FRACTURE [None]
  - COLITIS [None]
  - HYPERALBUMINAEMIA [None]
  - OSTEOARTHRITIS [None]
  - FALL [None]
  - FEMUR FRACTURE [None]
  - HYPOKALAEMIA [None]
  - PAIN [None]
  - SPINAL OSTEOARTHRITIS [None]
  - INFECTION [None]
  - VITAMIN D DEFICIENCY [None]
  - SYNOVITIS [None]
